FAERS Safety Report 21099732 (Version 1)
Quarter: 2022Q3

REPORT INFORMATION
  Report Type: Spontaneous
  Country: US (occurrence: US)
  Receive Date: 20220719
  Receipt Date: 20220719
  Transmission Date: 20221026
  Serious: No
  Sender: FDA-Public Use
  Company Number: US-MYLANLABS-2022M1078751

PATIENT
  Sex: Female

DRUGS (1)
  1. PANTOPRAZOLE [Suspect]
     Active Substance: PANTOPRAZOLE
     Indication: Gastritis
     Dosage: 40 MILLIGRAM
     Route: 065

REACTIONS (2)
  - Dizziness [Unknown]
  - Vertigo [Unknown]
